FAERS Safety Report 24801862 (Version 2)
Quarter: 2025Q3

REPORT INFORMATION
  Report Type: Spontaneous
  Country: EU (occurrence: EU)
  Receive Date: 20250102
  Receipt Date: 20250809
  Transmission Date: 20251021
  Serious: Yes (Hospitalization, Other)
  Sender: ALEXION PHARMACEUTICALS
  Company Number: EU-002147023-NVSC2020DE297660

PATIENT
  Sex: Female
  Weight: 74 kg

DRUGS (3)
  1. FASLODEX [Suspect]
     Active Substance: FULVESTRANT
     Indication: Breast cancer metastatic
     Dosage: 500 MG, Q4W
     Dates: start: 20191008
  2. FASLODEX [Suspect]
     Active Substance: FULVESTRANT
  3. KISQALI [Suspect]
     Active Substance: RIBOCICLIB SUCCINATE
     Indication: Breast cancer metastatic
     Dosage: 600 MG, QD 21 DAYS INTAKE, 7 DAYS PAUSE)
     Dates: start: 20191008

REACTIONS (2)
  - Peritonitis [Recovered/Resolved]
  - Rectal perforation [Recovered/Resolved]

NARRATIVE: CASE EVENT DATE: 20200719
